FAERS Safety Report 17031875 (Version 1)
Quarter: 2019Q4

REPORT INFORMATION
  Report Type: Spontaneous
  Country: US (occurrence: US)
  Receive Date: 20191113
  Receipt Date: 20191113
  Transmission Date: 20200122
  Serious: No
  Sender: FDA-Public Use
  Company Number: None

PATIENT
  Age: 55 Year
  Sex: Female
  Weight: 56.25 kg

DRUGS (1)
  1. COMBIPATCH [Suspect]
     Active Substance: ESTRADIOL\NORETHINDRONE ACETATE
     Indication: HORMONE REPLACEMENT THERAPY
     Dosage: ?          QUANTITY:1 PATCH(ES);OTHER FREQUENCY:1 PATCH TWICE A WK;?
     Route: 061
     Dates: start: 20181001, end: 20191113

REACTIONS (4)
  - Application site erythema [None]
  - Application site pain [None]
  - Application site pruritus [None]
  - Product adhesion issue [None]

NARRATIVE: CASE EVENT DATE: 20191113
